FAERS Safety Report 18450032 (Version 1)
Quarter: 2020Q4

REPORT INFORMATION
  Report Type: Spontaneous
  Country: JP (occurrence: JP)
  Receive Date: 20201030
  Receipt Date: 20201030
  Transmission Date: 20210114
  Serious: Yes (Other)
  Sender: FDA-Public Use
  Company Number: JP-JNJFOC-20201041434

PATIENT
  Age: 83 Year
  Sex: Female

DRUGS (12)
  1. XARELTO [Suspect]
     Active Substance: RIVAROXABAN
     Indication: THROMBOSIS PROPHYLAXIS
  2. XARELTO [Suspect]
     Active Substance: RIVAROXABAN
     Indication: ATRIAL FIBRILLATION
     Dosage: 10 MG
     Route: 048
  3. CRESTOR [Concomitant]
     Active Substance: ROSUVASTATIN CALCIUM
     Dosage: DAILY DOSE 2.5 MG
     Route: 048
  4. ZETIA [Concomitant]
     Active Substance: EZETIMIBE
     Dosage: DAILY DOSE 10 MG
     Route: 048
  5. PARIET [Concomitant]
     Active Substance: RABEPRAZOLE SODIUM
     Dosage: DAILY DOSE 10 MG
     Route: 048
  6. ADEMPAS [Suspect]
     Active Substance: RIOCIGUAT
     Indication: PULMONARY HYPERTENSION
     Dosage: DAILY DOSE 3 MG
     Route: 048
     Dates: start: 20160113, end: 20160323
  7. EDOXABAN [Concomitant]
     Active Substance: EDOXABAN TOSYLATE
     Dosage: DAILY DOSE 30 MG
     Route: 048
  8. EUTENSIN [Concomitant]
     Dosage: DAILY DOSE 10 MG
     Route: 048
  9. MACITENTAN [Concomitant]
     Active Substance: MACITENTAN
     Dosage: DAILY DOSE 10 MG
     Route: 048
     Dates: start: 20160306, end: 20160808
  10. ADEMPAS [Suspect]
     Active Substance: RIOCIGUAT
     Dosage: 0.5 MG, TID
     Route: 048
     Dates: start: 20160323
  11. BONALON [Suspect]
     Active Substance: ALENDRONATE SODIUM
     Indication: PRODUCT USED FOR UNKNOWN INDICATION
     Route: 065
  12. OPSUMIT [Concomitant]
     Active Substance: MACITENTAN
     Indication: PULMONARY HYPERTENSION
     Dosage: UNK
     Route: 048
     Dates: start: 2016, end: 2016

REACTIONS (5)
  - Back pain [Not Recovered/Not Resolved]
  - Hypoxia [Recovered/Resolved]
  - Oxygen saturation decreased [Recovered/Resolved]
  - Haemorrhage subcutaneous [Recovered/Resolved]
  - Pain in jaw [Not Recovered/Not Resolved]

NARRATIVE: CASE EVENT DATE: 20160301
